FAERS Safety Report 23539956 (Version 1)
Quarter: 2024Q1

REPORT INFORMATION
  Report Type: Spontaneous
  Country: US (occurrence: US)
  Receive Date: 20240219
  Receipt Date: 20240219
  Transmission Date: 20240410
  Serious: No
  Sender: FDA-Public Use
  Company Number: US-BAYER-2024A017440

PATIENT
  Age: 40 Year
  Sex: Female
  Weight: 99.773 kg

DRUGS (1)
  1. GADAVIST [Suspect]
     Active Substance: GADOBUTROL
     Indication: Magnetic resonance imaging
     Dosage: 10 ML, ONCE, LEFT HAND, 2 ML/SEC

REACTIONS (3)
  - Erythema [Recovered/Resolved]
  - Pruritus [None]
  - Urticaria [Recovered/Resolved]

NARRATIVE: CASE EVENT DATE: 20240106
